FAERS Safety Report 7068411-6 (Version None)
Quarter: 2010Q4

REPORT INFORMATION
  Report Type: 
  Country: None (occurrence: None)
  Receive Date: 20101028
  Receipt Date: 20101021
  Transmission Date: 20110411
  Serious: Yes (Other)
  Sender: FDA-Public Use
  Company Number: B0678302A

PATIENT
  Age: 42 Year
  Sex: Male

DRUGS (3)
  1. AMOXICILLIN [Suspect]
     Route: 065
  2. CLARITHROMYCIN [Suspect]
     Route: 065
  3. PANTOPRAZOLE [Suspect]
     Route: 065

REACTIONS (16)
  - ACUTE PSYCHOSIS [None]
  - AGITATION [None]
  - ANXIETY [None]
  - CONFUSIONAL STATE [None]
  - CRYING [None]
  - DECREASED APPETITE [None]
  - DELUSION [None]
  - DISORIENTATION [None]
  - GRANDIOSITY [None]
  - INSOMNIA [None]
  - NIGHTMARE [None]
  - PARANOIA [None]
  - PERSONALITY CHANGE [None]
  - RESTLESSNESS [None]
  - THINKING ABNORMAL [None]
  - VOMITING [None]
